FAERS Safety Report 11665013 (Version 1)
Quarter: 2015Q4

REPORT INFORMATION
  Report Type: Report from Study
  Country: JP (occurrence: JP)
  Receive Date: 20151027
  Receipt Date: 20151027
  Transmission Date: 20160304
  Serious: Yes (Hospitalization)
  Sender: FDA-Public Use
  Company Number: JP-EISAI MEDICAL RESEARCH-EC-2015-011457

PATIENT
  Age: 41 Year
  Sex: Female
  Weight: 65 kg

DRUGS (12)
  1. HALAVEN [Suspect]
     Active Substance: ERIBULIN MESYLATE
     Indication: BREAST CANCER RECURRENT
     Route: 041
     Dates: start: 20150415, end: 20150415
  2. PARIET [Concomitant]
     Active Substance: RABEPRAZOLE SODIUM
  3. CELECOX [Concomitant]
     Active Substance: CELECOXIB
  4. SOLACET D [Concomitant]
  5. DEXART [Concomitant]
     Active Substance: DEXAMETHASONE SODIUM PHOSPHATE
  6. CIPROXAN [Concomitant]
     Active Substance: CIPROFLOXACIN
  7. SEISHOKU [Concomitant]
     Active Substance: SODIUM CHLORIDE
  8. BFLUID [Concomitant]
     Active Substance: AMINO ACIDS\DEXTROSE\ELECTROLYTES NOS\VITAMINS
  9. MEROPEN [Concomitant]
     Active Substance: MEROPENEM
  10. HALAVEN [Suspect]
     Active Substance: ERIBULIN MESYLATE
     Route: 041
     Dates: start: 20150507, end: 20150917
  11. BEASLIMIN [Concomitant]
  12. GASMOTIN [Concomitant]
     Active Substance: MOSAPRIDE CITRATE

REACTIONS (4)
  - Lymphopenia [Recovered/Resolved]
  - Dizziness postural [Recovered/Resolved]
  - Leukopenia [Recovered/Resolved]
  - Neutropenia [Recovered/Resolved]

NARRATIVE: CASE EVENT DATE: 20150420
